FAERS Safety Report 18581045 (Version 2)
Quarter: 2020Q4

REPORT INFORMATION
  Report Type: Spontaneous
  Country: BE (occurrence: BE)
  Receive Date: 20201204
  Receipt Date: 20201215
  Transmission Date: 20210114
  Serious: Yes (Death, Life-Threatening, Hospitalization, Other)
  Sender: FDA-Public Use
  Company Number: BE-STRIDES ARCOLAB LIMITED-2020SP014841

PATIENT
  Age: 73 Year
  Sex: Male

DRUGS (2)
  1. OXYGEN. [Concomitant]
     Active Substance: OXYGEN
     Indication: IDIOPATHIC PULMONARY FIBROSIS
     Dosage: UNK
     Route: 065
  2. PREDNISOLONE. [Suspect]
     Active Substance: PREDNISOLONE
     Indication: IDIOPATHIC PULMONARY FIBROSIS
     Dosage: 15 MILLIGRAM (PER DAY)
     Route: 065

REACTIONS (9)
  - Idiopathic pulmonary fibrosis [Fatal]
  - Hypoxia [Not Recovered/Not Resolved]
  - Dyspnoea [Not Recovered/Not Resolved]
  - Pulmonary hypertension [Fatal]
  - Hypercapnia [Not Recovered/Not Resolved]
  - Acidosis [Not Recovered/Not Resolved]
  - Ventricular septal defect [Recovered/Resolved]
  - Tricuspid valve incompetence [Recovered/Resolved]
  - Right ventricular dilatation [Recovered/Resolved]
